FAERS Safety Report 22053085 (Version 1)
Quarter: 2023Q1

REPORT INFORMATION
  Report Type: Spontaneous
  Country: BE (occurrence: BE)
  Receive Date: 20230302
  Receipt Date: 20230302
  Transmission Date: 20230418
  Serious: Yes (Hospitalization)
  Sender: FDA-Public Use
  Company Number: BE-MYLANLABS-2023M1021695

PATIENT
  Age: 55 Year
  Sex: Male

DRUGS (3)
  1. SUMATRIPTAN [Suspect]
     Active Substance: SUMATRIPTAN
     Indication: Cluster headache
     Dosage: UNK, 6MG TWICE DAILY PRESCRIBED. THE PATIENT..
     Route: 058
  2. SUMATRIPTAN [Suspect]
     Active Substance: SUMATRIPTAN
     Dosage: 6 MILLIGRAM, AFTER CATHETERISATION
     Route: 058
  3. ELASOMERAN [Suspect]
     Active Substance: ELASOMERAN
     Indication: COVID-19 immunisation
     Dosage: UNK
     Route: 065

REACTIONS (5)
  - Intentional product misuse [Recovered/Resolved]
  - Treatment noncompliance [Recovered/Resolved]
  - Arteriospasm coronary [Recovered/Resolved]
  - Acute myocardial infarction [Recovered/Resolved]
  - Intentional overdose [Recovered/Resolved]
